FAERS Safety Report 18580109 (Version 1)
Quarter: 2020Q4

REPORT INFORMATION
  Report Type: Spontaneous
  Country: BR (occurrence: BR)
  Receive Date: 20201204
  Receipt Date: 20201204
  Transmission Date: 20210114
  Serious: Yes (Hospitalization, Other)
  Sender: FDA-Public Use
  Company Number: BR-GLAXOSMITHKLINE-BR2020235494

PATIENT
  Sex: Female

DRUGS (5)
  1. PNEUMOCOCCAL VACCINE POLYVALENT NOS [Concomitant]
     Active Substance: PNEUMOCOCCAL VACCINE POLYVALENT
     Indication: PNEUMONIA
     Dosage: UNK, PNEUMOCOCCAL-23 VACCINE
  2. AVAMYS [Suspect]
     Active Substance: FLUTICASONE FUROATE
     Indication: PNEUMONIA
  3. AVAMYS [Suspect]
     Active Substance: FLUTICASONE FUROATE
     Indication: NASAL CONGESTION
     Dosage: UNK
     Dates: start: 2019
  4. AVAMYS [Suspect]
     Active Substance: FLUTICASONE FUROATE
     Indication: ILLNESS
  5. PNEUMOCOCCAL VACCINE POLYVALENT NOS [Concomitant]
     Active Substance: PNEUMOCOCCAL VACCINE POLYVALENT
     Indication: ILLNESS

REACTIONS (5)
  - Ill-defined disorder [Unknown]
  - Product use in unapproved indication [Unknown]
  - Nasal disorder [Unknown]
  - Pneumonia [Unknown]
  - Illness [Unknown]
